FAERS Safety Report 25256310 (Version 1)
Quarter: 2025Q2

REPORT INFORMATION
  Report Type: Spontaneous
  Country: CA (occurrence: CA)
  Receive Date: 20250430
  Receipt Date: 20250430
  Transmission Date: 20250717
  Serious: Yes (Life-Threatening, Hospitalization, Other)
  Sender: FRESENIUS KABI
  Company Number: CA-FreseniusKabi-FK202506061

PATIENT
  Age: 13 Year
  Sex: Female

DRUGS (2)
  1. ETOPOSIDE [Suspect]
     Active Substance: ETOPOSIDE
     Indication: Osteosarcoma
     Dosage: FORM OF ADMIN: LIQUID INTRAVENOUS
     Route: 042
  2. IFEX [Suspect]
     Active Substance: IFOSFAMIDE
     Indication: Osteosarcoma
     Dosage: POWDER FOR SOLUTION INTRAVENOUS
     Route: 042

REACTIONS (9)
  - Febrile neutropenia [Recovered/Resolved]
  - Hypoglycaemia [Recovered/Resolved]
  - Hypokalaemia [Recovered/Resolved]
  - Hypophosphataemia [Recovered/Resolved]
  - Hypotension [Recovered/Resolved]
  - Neutrophil count abnormal [Recovered/Resolved]
  - Proctalgia [Recovered/Resolved]
  - Productive cough [Recovered/Resolved]
  - Pyrexia [Recovered/Resolved]
